FAERS Safety Report 5678614-0 (Version None)
Quarter: 2008Q1

REPORT INFORMATION
  Report Type: 
  Country: None (occurrence: None)
  Receive Date: 20080320
  Receipt Date: 20080310
  Transmission Date: 20080703
  Serious: Yes (Death, Life-Threatening, Hospitalization, Other)
  Sender: FDA-Public Use
  Company Number: 2008S1004034

PATIENT
  Age: 45 Year
  Sex: Female

DRUGS (8)
  1. METHOTREXATE [Suspect]
     Indication: RHEUMATOID ARTHRITIS
     Dosage: ; ORAL
     Route: 048
     Dates: start: 20070731, end: 20071124
  2. HUMIRA [Suspect]
     Indication: RHEUMATOID ARTHRITIS
     Dosage: ; EVERY OTHER WEEK; SUBCUTANEOUS
     Route: 058
     Dates: start: 20070731, end: 20071120
  3. ETORICOXIB [Concomitant]
  4. PREDNISONE [Concomitant]
  5. FOLIC ACID [Concomitant]
  6. ACETAMINOPHEN [Concomitant]
  7. DICLOFENAC [Concomitant]
  8. PINAVERIUM BROMIDE [Concomitant]

REACTIONS (18)
  - ABDOMINAL SEPSIS [None]
  - ACID-BASE BALANCE DISORDER MIXED [None]
  - ANURIA [None]
  - ASCITES [None]
  - CARDIO-RESPIRATORY ARREST [None]
  - HYPERKALAEMIA [None]
  - HYPOXIA [None]
  - ILEAL PERFORATION [None]
  - LUNG DISORDER [None]
  - MULTI-ORGAN FAILURE [None]
  - OEDEMA PERIPHERAL [None]
  - OVARIAN CYST [None]
  - PLEURAL EFFUSION [None]
  - RESPIRATORY ACIDOSIS [None]
  - SEPTIC SHOCK [None]
  - TUBERCULOSIS GASTROINTESTINAL [None]
  - UMBILICAL HERNIA [None]
  - WOUND SECRETION [None]
